FAERS Safety Report 8441805-X (Version None)
Quarter: 2012Q2

REPORT INFORMATION
  Report Type: 
  Country: None (occurrence: None)
  Receive Date: 20120615
  Receipt Date: 20120606
  Transmission Date: 20120825
  Serious: Yes (Hospitalization)
  Sender: FDA-Public Use
  Company Number: US-BAYER-2011-072744

PATIENT
  Age: 27 Year
  Sex: Female
  Weight: 63.039 kg

DRUGS (11)
  1. ROBAXIN [Concomitant]
     Indication: MUSCLE SPASMS
  2. VICODIN [Concomitant]
  3. BUSPAR [Concomitant]
     Indication: ANXIETY
     Dosage: UNK
     Dates: start: 20030101, end: 20090101
  4. CLONAZEPAM [Concomitant]
     Indication: SLEEP DISORDER
     Dosage: 0.5 MG,  HS AS NEEDED
  5. YAZ [Suspect]
     Dosage: UNK
     Dates: start: 20050501, end: 20080826
  6. ROBAXIN [Concomitant]
     Indication: PAIN
     Dosage: 500 MG, QID
     Route: 048
     Dates: start: 20040101, end: 20090101
  7. YAZ [Suspect]
     Indication: CONTRACEPTION
     Dosage: UNK
     Dates: start: 20020101, end: 20040901
  8. YASMIN [Suspect]
     Indication: CONTRACEPTION
     Dosage: UNK
     Dates: start: 20020101, end: 20040901
  9. NAPROXEN [Concomitant]
     Indication: PAIN
     Dosage: 250 MG, TAKE TWO TABLETS TWO TIMES DAILY.
     Route: 048
  10. YASMIN [Suspect]
     Dosage: UNK
     Dates: start: 20050501, end: 20080826
  11. NAPROXEN [Concomitant]
     Indication: INFLAMMATION

REACTIONS (7)
  - PAIN [None]
  - PULMONARY EMBOLISM [None]
  - CHEST PAIN [None]
  - ANHEDONIA [None]
  - DYSPNOEA [None]
  - ANXIETY [None]
  - INJURY [None]
